FAERS Safety Report 8408114-6 (Version None)
Quarter: 2012Q2

REPORT INFORMATION
  Report Type: 
  Country: None (occurrence: None)
  Receive Date: 20120604
  Receipt Date: 20120524
  Transmission Date: 20120825
  Serious: Yes (Hospitalization)
  Sender: FDA-Public Use
  Company Number: DE-FRI-1000030540

PATIENT
  Age: 82 Year
  Sex: Female

DRUGS (1)
  1. MEMANTINE HCL [Suspect]
     Indication: DEMENTIA ALZHEIMER'S TYPE
     Dosage: 15 MG
     Route: 048
     Dates: start: 20120405, end: 20120430

REACTIONS (4)
  - PYREXIA [None]
  - ABDOMINAL PAIN [None]
  - CONSTIPATION [None]
  - ENTERITIS [None]
